FAERS Safety Report 25170338 (Version 1)
Quarter: 2025Q2

REPORT INFORMATION
  Report Type: Report from Study
  Country: CA (occurrence: CA)
  Receive Date: 20250408
  Receipt Date: 20250408
  Transmission Date: 20250716
  Serious: Yes (Other)
  Sender: ABBVIE
  Company Number: CA-ABBVIE-6207022

PATIENT
  Age: 77 Year
  Sex: Female

DRUGS (2)
  1. RINVOQ [Suspect]
     Active Substance: UPADACITINIB
     Indication: Rheumatoid arthritis
     Dosage: FORM STRENGTH:15 MG
     Route: 048
     Dates: end: 20250308
  2. RINVOQ [Suspect]
     Active Substance: UPADACITINIB
     Indication: Rheumatoid arthritis
     Dosage: FORM STRENGTH:15 MG
     Route: 048
     Dates: start: 20250331

REACTIONS (10)
  - Pulmonary oedema [Unknown]
  - Cardiomegaly [Unknown]
  - Illness [Unknown]
  - Malaise [Unknown]
  - Speech disorder [Unknown]
  - Chronic obstructive pulmonary disease [Unknown]
  - Facial pain [Unknown]
  - Pyrexia [Unknown]
  - Cystitis [Unknown]
  - Joint swelling [Unknown]

NARRATIVE: CASE EVENT DATE: 20250307
